FAERS Safety Report 4686504-5 (Version None)
Quarter: 2005Q2

REPORT INFORMATION
  Report Type: 
  Country: None (occurrence: None)
  Receive Date: 20050606
  Receipt Date: 20050524
  Transmission Date: 20051028
  Serious: Yes (Hospitalization, Other)
  Sender: FDA-Public Use
  Company Number: 2005079350

PATIENT
  Sex: Female
  Weight: 67.1324 kg

DRUGS (3)
  1. CELEBREX [Suspect]
     Indication: OSTEOARTHRITIS
     Dosage: 200 MG (200 MG, QD INTERVAL: PRN), ORAL
     Route: 048
     Dates: end: 20050520
  2. NITROGLYCERIN [Suspect]
     Indication: CHEST PAIN
     Dosage: SUBLINGUAL
     Route: 060
  3. PREMARIN [Concomitant]

REACTIONS (23)
  - ATRIAL FIBRILLATION [None]
  - BLISTER [None]
  - BLOOD PRESSURE DECREASED [None]
  - BLOOD PRESSURE SYSTOLIC DECREASED [None]
  - BLOOD PRESSURE SYSTOLIC INCREASED [None]
  - CHEST PAIN [None]
  - CHOLELITHIASIS [None]
  - DRUG INEFFECTIVE [None]
  - FLUID RETENTION [None]
  - HAEMORRHAGE [None]
  - HYPERTENSION [None]
  - JOINT EFFUSION [None]
  - JOINT SWELLING [None]
  - OSTEOARTHRITIS [None]
  - OVERWORK [None]
  - PAIN IN EXTREMITY [None]
  - POLLAKIURIA [None]
  - RASH [None]
  - SCRATCH [None]
  - SKIN EXFOLIATION [None]
  - SKIN HAEMORRHAGE [None]
  - STRESS [None]
  - URINARY INCONTINENCE [None]
